FAERS Safety Report 25142027 (Version 1)
Quarter: 2025Q1

REPORT INFORMATION
  Report Type: Spontaneous
  Country: CA (occurrence: CA)
  Receive Date: 20250331
  Receipt Date: 20250331
  Transmission Date: 20250408
  Serious: Yes (Other)
  Sender: PFIZER
  Company Number: CA-PFIZER INC-202500067701

PATIENT
  Age: 38 Year
  Sex: Female

DRUGS (8)
  1. RUXIENCE [Suspect]
     Active Substance: RITUXIMAB-PVVR
     Indication: Multiple sclerosis
     Route: 042
     Dates: start: 20240318, end: 20240401
  2. RUXIENCE [Suspect]
     Active Substance: RITUXIMAB-PVVR
     Route: 042
     Dates: start: 20241003, end: 20241003
  3. ATROVENT [Concomitant]
     Active Substance: IPRATROPIUM BROMIDE
  4. CARBAMAZEPINE [Concomitant]
     Active Substance: CARBAMAZEPINE
  5. CYCLOBENZAPRINE [Concomitant]
     Active Substance: CYCLOBENZAPRINE
  6. GABAPENTIN [Concomitant]
     Active Substance: GABAPENTIN
     Dosage: 3600 MG, DAILY
  7. MONTELUKAST [Concomitant]
     Active Substance: MONTELUKAST
     Dosage: 10 MG, DAILY
  8. VENTOLIN [Concomitant]
     Active Substance: ALBUTEROL SULFATE

REACTIONS (2)
  - Coeliac disease [Unknown]
  - Off label use [Unknown]
